FAERS Safety Report 8780550 (Version 1)
Quarter: 2012Q4

REPORT INFORMATION
  Report Type: 
  Country: BR (occurrence: BR)
  Receive Date: 20120913
  Receipt Date: 20120913
  Transmission Date: 20130627
  Serious: Yes (Other)
  Sender: FDA-Public Use
  Company Number: PHHY2012BR078792

PATIENT
  Age: 30 Year
  Sex: Female

DRUGS (3)
  1. CICLOSPORIN [Suspect]
     Indication: RENAL TRANSPLANT
  2. NIFEDIPINE [Interacting]
     Indication: HYPERTENSION
  3. AZATHIOPRINE [Concomitant]
     Indication: RENAL TRANSPLANT

REACTIONS (2)
  - Mouth ulceration [Unknown]
  - Gingival hypertrophy [Unknown]
